FAERS Safety Report 6870191-1 (Version None)
Quarter: 2010Q3

REPORT INFORMATION
  Report Type: 
  Country: None (occurrence: None)
  Receive Date: 20100723
  Receipt Date: 20100719
  Transmission Date: 20110219
  Serious: Yes (Other)
  Sender: FDA-Public Use
  Company Number: GB-BIOGENIDEC-2010BI018531

PATIENT
  Age: 52 Year
  Sex: Female

DRUGS (7)
  1. TYSABRI [Suspect]
     Indication: MULTIPLE SCLEROSIS
     Route: 042
     Dates: start: 20090317, end: 20100412
  2. TYSABRI [Suspect]
     Dates: start: 20100707
  3. CORTICOSTEROIDS [Concomitant]
     Dates: end: 20090901
  4. CITALOPRAM [Concomitant]
  5. MITOXANTRONE [Concomitant]
  6. SUMATRIPTAN SUCCINATE [Concomitant]
  7. HORMONE REPLACEMENT THERAPY [Concomitant]

REACTIONS (1)
  - MYOCLONUS [None]
